FAERS Safety Report 5053382-4 (Version None)
Quarter: 2006Q3

REPORT INFORMATION
  Report Type: 
  Country: None (occurrence: None)
  Receive Date: 20060712
  Receipt Date: 20060629
  Transmission Date: 20061208
  Serious: Yes (Hospitalization, Other)
  Sender: FDA-Public Use
  Company Number: A-CH2006-12539

PATIENT
  Age: 15 Year
  Sex: Male
  Weight: 53 kg

DRUGS (1)
  1. TRACLEER [Suspect]
     Indication: PULMONARY HYPERTENSION
     Dosage: ORAL
     Route: 048

REACTIONS (13)
  - ACTIVATED PARTIAL THROMBOPLASTIN TIME PROLONGED [None]
  - BRADYCARDIA [None]
  - DIZZINESS [None]
  - FEELING HOT [None]
  - HEADACHE [None]
  - HYPERHIDROSIS [None]
  - HYPOTENSION [None]
  - INTENTIONAL OVERDOSE [None]
  - NAUSEA [None]
  - PROTHROMBIN TIME PROLONGED [None]
  - SUICIDE ATTEMPT [None]
  - VISION BLURRED [None]
  - VOMITING [None]
